FAERS Safety Report 4323137-4 (Version None)
Quarter: 2004Q1

REPORT INFORMATION
  Report Type: 
  Country: None (occurrence: None)
  Receive Date: 20040324
  Receipt Date: 20040324
  Transmission Date: 20041129
  Serious: Yes (Death)
  Sender: FDA-Public Use
  Company Number: None

PATIENT
  Age: 46 Year
  Sex: Male
  Weight: 102.9665 kg

DRUGS (13)
  1. METFORMIN HCL [Suspect]
     Indication: DIABETES MELLITUS
     Dosage: 1000 MG Q AM, 500 MG Q NOON, 1000 MG Q PM
  2. INSULIN [Concomitant]
  3. CANDESARTAN [Concomitant]
  4. VENAFAXINE [Concomitant]
  5. RABEPRAZOLE SODIUM [Concomitant]
  6. AZATHAPRINE [Concomitant]
  7. MESALAMINE [Concomitant]
  8. NIFEDIPINE [Concomitant]
  9. SIMVASTATIN [Concomitant]
  10. ETANERCEPT [Concomitant]
  11. MORPHINE [Concomitant]
  12. HYDROCHLOROTHIAZIDE [Concomitant]
  13. GLYBURIDE [Concomitant]

REACTIONS (9)
  - ANION GAP INCREASED [None]
  - BLOOD AMYLASE INCREASED [None]
  - BLOOD CALCIUM INCREASED [None]
  - BLOOD GLUCOSE INCREASED [None]
  - DEHYDRATION [None]
  - DRUG LEVEL INCREASED [None]
  - HYPOTENSION [None]
  - LACTIC ACIDOSIS [None]
  - WHITE BLOOD CELL COUNT INCREASED [None]
